FAERS Safety Report 9942725 (Version 1)
Quarter: 2014Q1

REPORT INFORMATION
  Report Type: Report from Study
  Country: US (occurrence: US)
  Receive Date: 20140303
  Receipt Date: 20140303
  Transmission Date: 20141002
  Serious: No
  Sender: FDA-Public Use
  Company Number: US-ABBVIE-13P-163-1045646-00

PATIENT
  Age: 42 Year
  Sex: Female

DRUGS (10)
  1. HUMIRA [Suspect]
     Indication: CROHN^S DISEASE
     Dates: start: 20121029
  2. PREDNISONE [Concomitant]
     Indication: CROHN^S DISEASE
     Dosage: INTERMITTENTLY
  3. FLEXERIL [Concomitant]
     Indication: ABDOMINAL RIGIDITY
     Dosage: 5-10MG AT BEDTIME
  4. FLEXERIL [Concomitant]
     Indication: ARTHRITIS
  5. FLEXERIL [Concomitant]
     Indication: TEMPOROMANDIBULAR JOINT SYNDROME
  6. RANITIDINE [Concomitant]
     Indication: GASTROOESOPHAGEAL REFLUX DISEASE
  7. PROMETHAZINE [Concomitant]
     Indication: NAUSEA
  8. BENTYL [Concomitant]
     Indication: MUSCLE SPASMS
  9. BENTYL [Concomitant]
     Indication: MUSCLE SPASMS
  10. TRAMADOL [Concomitant]
     Indication: PAIN

REACTIONS (6)
  - Weight increased [Not Recovered/Not Resolved]
  - Pyrexia [Not Recovered/Not Resolved]
  - Productive cough [Not Recovered/Not Resolved]
  - Swelling face [Not Recovered/Not Resolved]
  - Abdominal pain [Not Recovered/Not Resolved]
  - Dyspnoea [Not Recovered/Not Resolved]
